FAERS Safety Report 18176989 (Version 1)
Quarter: 2020Q3

REPORT INFORMATION
  Report Type: Spontaneous
  Country: CN (occurrence: CN)
  Receive Date: 20200821
  Receipt Date: 20200821
  Transmission Date: 20201103
  Serious: Yes (Other)
  Sender: FDA-Public Use
  Company Number: CN-B.I. PHARMACEUTICALS,INC./RIDGEFIELD-2020-BI-042453

PATIENT
  Age: 73 Year
  Sex: Male

DRUGS (10)
  1. PEMETREXED. [Concomitant]
     Active Substance: PEMETREXED
     Indication: EGFR GENE MUTATION
  2. OSIMERTINIB. [Concomitant]
     Active Substance: OSIMERTINIB
     Indication: LUNG ADENOCARCINOMA STAGE IV
     Route: 065
  3. ICOTINIB [Concomitant]
     Active Substance: ICOTINIB
     Indication: LUNG ADENOCARCINOMA STAGE IV
     Route: 048
  4. ICOTINIB [Concomitant]
     Active Substance: ICOTINIB
     Indication: EGFR GENE MUTATION
  5. OSIMERTINIB. [Concomitant]
     Active Substance: OSIMERTINIB
     Indication: EGFR GENE MUTATION
  6. CARBOPLATIN. [Concomitant]
     Active Substance: CARBOPLATIN
     Indication: EGFR GENE MUTATION
  7. PEMETREXED. [Concomitant]
     Active Substance: PEMETREXED
     Indication: LUNG ADENOCARCINOMA STAGE IV
     Route: 065
  8. GILOTRIF [Suspect]
     Active Substance: AFATINIB
     Indication: EGFR GENE MUTATION
     Route: 048
  9. GILOTRIF [Suspect]
     Active Substance: AFATINIB
     Indication: LUNG ADENOCARCINOMA STAGE IV
     Route: 048
  10. CARBOPLATIN. [Concomitant]
     Active Substance: CARBOPLATIN
     Indication: LUNG ADENOCARCINOMA STAGE IV
     Route: 065

REACTIONS (8)
  - Malignant neoplasm progression [Unknown]
  - Cough [Recovered/Resolved]
  - Paronychia [Unknown]
  - Metastases to liver [Unknown]
  - Metastases to central nervous system [Unknown]
  - Therapy partial responder [Unknown]
  - Diarrhoea [Unknown]
  - Rash [Unknown]
